FAERS Safety Report 24744551 (Version 1)
Quarter: 2024Q4

REPORT INFORMATION
  Report Type: Spontaneous
  Country: US (occurrence: US)
  Receive Date: 20241217
  Receipt Date: 20241217
  Transmission Date: 20250114
  Serious: No
  Sender: DR REDDYS
  Company Number: US-DRL-USA-SPO/USA/24/0018240

PATIENT
  Age: 33 Year
  Sex: Female

DRUGS (1)
  1. ZENATANE [Suspect]
     Active Substance: ISOTRETINOIN
     Indication: Acne
     Dosage: ZENATANE (ISOTRETINOIN CAPSULES, USP) CAPSULES  40 MG - DRL BOX OF 30 (3X10)

REACTIONS (1)
  - Adverse drug reaction [Unknown]
